FAERS Safety Report 16986489 (Version 1)
Quarter: 2019Q4

REPORT INFORMATION
  Report Type: Spontaneous
  Country: CO (occurrence: CO)
  Receive Date: 20191006
  Receipt Date: 20191006
  Transmission Date: 20200122
  Serious: Yes (Other)
  Sender: FDA-Public Use
  Company Number: None

PATIENT
  Age: 40 Year
  Sex: Female
  Weight: 60 kg

DRUGS (4)
  1. EMTRICITABINE AND TENOFOVIR DISOPROXIL FUMARATE [Suspect]
     Active Substance: EMTRICITABINE\TENOFOVIR DISOPROXIL FUMARATE
     Indication: HIV INFECTION
     Dosage: ?          QUANTITY:1 TABLET(S);?
     Route: 048
  2. IRON [Concomitant]
     Active Substance: IRON
  3. RITONAVIR. [Concomitant]
     Active Substance: RITONAVIR
  4. DARUNAVIR [Concomitant]
     Active Substance: DARUNAVIR

REACTIONS (2)
  - Discomfort [None]
  - Osteoporosis [None]

NARRATIVE: CASE EVENT DATE: 20191004
